FAERS Safety Report 5575690-0 (Version None)
Quarter: 2007Q4

REPORT INFORMATION
  Report Type: 
  Country: None (occurrence: None)
  Receive Date: 20071130
  Receipt Date: 20070925
  Transmission Date: 20080405
  Serious: No
  Sender: FDA-Public Use
  Company Number: US200709006101

PATIENT
  Age: 47 Year
  Sex: Female
  Weight: 93.9 kg

DRUGS (6)
  1. BYETTA [Suspect]
     Dosage: 5 UG, 2/D, SUBCUTANEOUS, 5 UG, DAILY (1/D), SUBCUTANEOUS, 10 UG, DAILY (1/D), SUBCUTANEOUS
     Route: 058
     Dates: start: 20070813, end: 20070912
  2. BYETTA [Suspect]
     Dosage: 5 UG, 2/D, SUBCUTANEOUS, 5 UG, DAILY (1/D), SUBCUTANEOUS, 10 UG, DAILY (1/D), SUBCUTANEOUS
     Route: 058
     Dates: start: 20070913, end: 20070917
  3. BYETTA [Suspect]
     Dosage: 5 UG, 2/D, SUBCUTANEOUS, 5 UG, DAILY (1/D), SUBCUTANEOUS, 10 UG, DAILY (1/D), SUBCUTANEOUS
     Route: 058
     Dates: start: 20070913, end: 20070917
  4. BYETTA [Suspect]
     Dosage: 5 UG, 2/D, SUBCUTANEOUS, 5 UG, DAILY (1/D), SUBCUTANEOUS, 10 UG, DAILY (1/D), SUBCUTANEOUS
     Route: 058
     Dates: start: 20070918
  5. AMARYL [Concomitant]
  6. LEVEMIR (INSULIN DETEMIR) [Concomitant]

REACTIONS (5)
  - BLOOD GLUCOSE DECREASED [None]
  - FLUID INTAKE REDUCED [None]
  - NAUSEA [None]
  - VOMITING [None]
  - WEIGHT DECREASED [None]
